FAERS Safety Report 15126961 (Version 1)
Quarter: 2018Q3

REPORT INFORMATION
  Report Type: Spontaneous
  Country: GB (occurrence: GB)
  Receive Date: 20180710
  Receipt Date: 20180710
  Transmission Date: 20181010
  Serious: Yes (Other)
  Sender: FDA-Public Use
  Company Number: GB-TEVA-2018-GB-923190

PATIENT
  Age: 81 Year
  Sex: Female
  Weight: 77 kg

DRUGS (17)
  1. BUTEC [Concomitant]
     Active Substance: BUPRENORPHINE
     Dosage: APPLY.
     Route: 065
     Dates: start: 20180411
  2. OMEPRAZOLE. [Concomitant]
     Active Substance: OMEPRAZOLE
     Dosage: 2 DOSAGE FORMS DAILY;
     Route: 065
     Dates: start: 20170510
  3. FUROSEMIDE. [Concomitant]
     Active Substance: FUROSEMIDE
     Dosage: 2 DOSAGE FORMS DAILY; 1AM AND 2PM.
     Route: 065
     Dates: start: 20170510
  4. DOCUSATE SODIUM. [Concomitant]
     Active Substance: DOCUSATE SODIUM
     Dosage: 3 DOSAGE FORMS DAILY;
     Dates: start: 20180320
  5. M+A PHARMACHEM PARACETAMOL [Concomitant]
     Dosage: 1?2 FOUR TIMES DAILY.
     Route: 065
     Dates: start: 20170510
  6. OXYNORM [Concomitant]
     Active Substance: OXYCODONE HYDROCHLORIDE
     Indication: PAIN
     Dosage: 2.5 OR 5MG.
     Route: 065
     Dates: start: 20180413
  7. RAMIPRIL. [Concomitant]
     Active Substance: RAMIPRIL
     Dosage: 1 DOSAGE FORMS DAILY;
     Route: 065
     Dates: start: 20171017
  8. ISOSORBIDE MONONITRATE. [Concomitant]
     Active Substance: ISOSORBIDE MONONITRATE
     Dosage: 2 DOSAGE FORMS DAILY;
     Route: 065
     Dates: start: 20171017
  9. HALOPERIDOL. [Concomitant]
     Active Substance: HALOPERIDOL
     Indication: MALAISE
     Dosage: 2 DOSAGE FORMS DAILY; NIGHT.
     Dates: start: 20180320
  10. BUPRENORPHINE. [Concomitant]
     Active Substance: BUPRENORPHINE
     Dosage: APPLY.
     Route: 065
     Dates: start: 20180320, end: 20180411
  11. SALBUTAMOL [Concomitant]
     Active Substance: ALBUTEROL
     Dosage: FOUR TIMES A DAY.
     Route: 055
     Dates: start: 20180404
  12. OXYCODONE HYDROCHLORIDE. [Suspect]
     Active Substance: OXYCODONE HYDROCHLORIDE
     Route: 065
     Dates: start: 20180529
  13. ACETYLSALICYLIC ACID [Concomitant]
     Active Substance: ASPIRIN
     Dosage: 1 DOSAGE FORMS DAILY;
     Route: 065
     Dates: start: 20170510
  14. ATORVASTATIN [Concomitant]
     Active Substance: ATORVASTATIN
     Dosage: 1 DOSAGE FORMS DAILY;
     Route: 065
     Dates: start: 20170902
  15. COSMOCOL [Concomitant]
     Dosage: USE AS DIRECTED
     Route: 065
     Dates: start: 20180420
  16. CYCLIZINE [Concomitant]
     Active Substance: CYCLIZINE
     Dosage: 3 DOSAGE FORMS DAILY;
     Dates: start: 20180309, end: 20180408
  17. BISOPROLOL [Concomitant]
     Active Substance: BISOPROLOL
     Dosage: 1 DOSAGE FORMS DAILY;
     Route: 065
     Dates: start: 20170510

REACTIONS (1)
  - Swollen tongue [Recovered/Resolved]

NARRATIVE: CASE EVENT DATE: 20180529
